FAERS Safety Report 9208352 (Version 1)
Quarter: 2013Q2

REPORT INFORMATION
  Report Type: Spontaneous
  Country: US (occurrence: US)
  Receive Date: 20130404
  Receipt Date: 20130404
  Transmission Date: 20140414
  Serious: Yes (Other)
  Sender: FDA-Public Use
  Company Number: US-AMGEN-USASP2013022513

PATIENT
  Age: 51 Year
  Sex: Female
  Weight: 117.91 kg

DRUGS (1)
  1. ENBREL [Suspect]
     Indication: PSORIATIC ARTHROPATHY
     Dosage: 50 MG, QWK
     Route: 058
     Dates: start: 201302, end: 20130322

REACTIONS (4)
  - Depression [Unknown]
  - Swelling [Unknown]
  - Muscular weakness [Unknown]
  - Drug ineffective [Unknown]
